FAERS Safety Report 24124784 (Version 2)
Quarter: 2024Q3

REPORT INFORMATION
  Report Type: Spontaneous
  Country: US (occurrence: US)
  Receive Date: 20240723
  Receipt Date: 20240906
  Transmission Date: 20241017
  Serious: No
  Sender: ROCHE
  Company Number: US-ROCHE-10000031426

PATIENT
  Sex: Male

DRUGS (2)
  1. XOLAIR [Suspect]
     Active Substance: OMALIZUMAB
     Indication: Urticaria
     Dosage: STRENGTH: 150MG/ML
     Route: 058
     Dates: start: 202007
  2. XOLAIR [Suspect]
     Active Substance: OMALIZUMAB

REACTIONS (3)
  - Swelling face [Unknown]
  - Peripheral swelling [Unknown]
  - Drug ineffective [Unknown]
